FAERS Safety Report 20315400 (Version 1)
Quarter: 2022Q1

REPORT INFORMATION
  Report Type: Spontaneous
  Country: US (occurrence: None)
  Receive Date: 20220107
  Receipt Date: 20220107
  Transmission Date: 20220423
  Serious: Yes (Hospitalization, Other)
  Sender: FDA-Public Use
  Company Number: None

PATIENT
  Age: 67 Year
  Sex: Female
  Weight: 59.85 kg

DRUGS (1)
  1. HIZENTRA [Suspect]
     Active Substance: HUMAN IMMUNOGLOBULIN G
     Indication: Immunodeficiency common variable
     Dosage: OTHER FREQUENCY : WEEKLY;?
     Route: 058
     Dates: start: 20211015, end: 20220102

REACTIONS (6)
  - Product quality issue [None]
  - Headache [None]
  - Unevaluable event [None]
  - Anti-GAD antibody positive [None]
  - Blood glucose abnormal [None]
  - Cerebrovascular accident [None]

NARRATIVE: CASE EVENT DATE: 20220106
